FAERS Safety Report 9288161 (Version 3)
Quarter: 2013Q3

REPORT INFORMATION
  Report Type: Spontaneous
  Country: DK (occurrence: JP)
  Receive Date: 20130514
  Receipt Date: 20130826
  Transmission Date: 20140515
  Serious: No
  Sender: FDA-Public Use
  Company Number: JP-FRI-1000045083

PATIENT
  Age: 19 Year
  Sex: Female
  Weight: 47 kg

DRUGS (3)
  1. LEXAPRO [Suspect]
     Indication: DEPRESSIVE SYMPTOM
     Route: 048
     Dates: start: 201301
  2. LEXAPRO [Suspect]
     Dosage: 10 MG
     Route: 048
     Dates: start: 20130418, end: 20130430
  3. HORIZON [Concomitant]
     Indication: DEPRESSIVE SYMPTOM
     Dosage: 2 MG
     Route: 048
     Dates: start: 20130418, end: 20130429

REACTIONS (1)
  - Electrocardiogram QT prolonged [Recovered/Resolved]
